FAERS Safety Report 17108657 (Version 7)
Quarter: 2021Q4

REPORT INFORMATION
  Report Type: Report from Study
  Country: MY (occurrence: MY)
  Receive Date: 20191203
  Receipt Date: 20211005
  Transmission Date: 20220303
  Serious: Yes (Death, Hospitalization, Other)
  Sender: FDA-Public Use
  Company Number: MY-JNJFOC-20191125848

PATIENT
  Age: 77 Year
  Sex: Male
  Weight: 69.7 kg

DRUGS (3)
  1. NIRAPARIB [Suspect]
     Active Substance: NIRAPARIB
     Indication: Prostate cancer
     Dosage: 200 MG, QD
     Route: 048
     Dates: start: 20191001, end: 20191202
  2. ABIRATERONE ACETATE [Suspect]
     Active Substance: ABIRATERONE ACETATE
     Indication: Prostate cancer metastatic
     Dosage: 1000 MG, QD
     Route: 048
     Dates: start: 20191001, end: 20191202
  3. PREDNISONE [Suspect]
     Active Substance: PREDNISONE
     Indication: Prostate cancer metastatic
     Dosage: 10 MG, QD
     Route: 048
     Dates: start: 20191001, end: 20191202

REACTIONS (2)
  - Dyspnoea [Fatal]
  - Urosepsis [Recovering/Resolving]

NARRATIVE: CASE EVENT DATE: 20191114
